FAERS Safety Report 25716421 (Version 4)
Quarter: 2025Q4

REPORT INFORMATION
  Report Type: Report from Study
  Country: US (occurrence: US)
  Receive Date: 20250822
  Receipt Date: 20251201
  Transmission Date: 20260117
  Serious: No
  Sender: MALLINCKRODT
  Company Number: US-MALLINCKRODT-MNK202505081

PATIENT
  Age: 62 Year
  Sex: Female

DRUGS (4)
  1. CORTICOTROPIN [Suspect]
     Active Substance: CORTICOTROPIN
     Indication: Rheumatoid arthritis
     Dosage: 80 UNITS
     Dates: start: 20250805, end: 2025
  2. ENBREL [Concomitant]
     Active Substance: ETANERCEPT
     Dosage: UNKNOWN
  3. ACTEMRA [Concomitant]
     Active Substance: TOCILIZUMAB
     Dosage: UNKNOWN
     Route: 042
  4. PREDNISONE [Concomitant]
     Active Substance: PREDNISONE
     Dosage: UNKNOWN

REACTIONS (3)
  - Increased tendency to bruise [Unknown]
  - Psychomotor hyperactivity [Unknown]
  - Localised infection [Unknown]

NARRATIVE: CASE EVENT DATE: 20250801
